FAERS Safety Report 18150316 (Version 1)
Quarter: 2020Q3

REPORT INFORMATION
  Report Type: Other
  Country: DE (occurrence: DE)
  Receive Date: 20200814
  Receipt Date: 20200814
  Transmission Date: 20201103
  Serious: Yes (Hospitalization)
  Sender: FDA-Public Use
  Company Number: DE-ROCHE-2656488

PATIENT
  Age: 36 Year
  Sex: Female
  Weight: 55 kg

DRUGS (8)
  1. GLATIRAMER ACETATE. [Suspect]
     Active Substance: GLATIRAMER ACETATE
     Indication: PRODUCT USED FOR UNKNOWN INDICATION
     Route: 065
  2. VIT D [Concomitant]
     Active Substance: VITAMIN D NOS
     Indication: PROPHYLAXIS
     Dates: start: 20180422, end: 20200622
  3. OCRELIZUMAB. [Suspect]
     Active Substance: OCRELIZUMAB
     Indication: PRODUCT USED FOR UNKNOWN INDICATION
     Route: 042
     Dates: start: 20200506, end: 20200506
  4. FOLIC ACID. [Concomitant]
     Active Substance: FOLIC ACID
     Dates: start: 20200623
  5. MAGNESIUM [Concomitant]
     Active Substance: MAGNESIUM
     Indication: PREGNANCY
     Dates: start: 20200623
  6. PROGESTERON [Concomitant]
     Active Substance: PROGESTERONE
     Indication: PREGNANCY
     Dates: start: 20200623
  7. PREDNISOLUT [Concomitant]
     Active Substance: PREDNISOLONE
     Indication: PROPHYLAXIS
     Dates: start: 20200506, end: 20200506
  8. FOLIC ACID. [Concomitant]
     Active Substance: FOLIC ACID
     Indication: PROPHYLAXIS
     Dates: start: 20200520, end: 20200622

REACTIONS (2)
  - Abortion spontaneous [Recovered/Resolved]
  - Maternal exposure during pregnancy [Unknown]

NARRATIVE: CASE EVENT DATE: 20200727
